FAERS Safety Report 15416166 (Version 1)
Quarter: 2018Q3

REPORT INFORMATION
  Report Type: Spontaneous
  Country: US (occurrence: US)
  Receive Date: 20180923
  Receipt Date: 20180923
  Transmission Date: 20181010
  Serious: No
  Sender: FDA-Public Use
  Company Number: US-GLAXOSMITHKLINE-US2018GSK169652

PATIENT

DRUGS (1)
  1. SUMATRIPTAN SUCCINATE SOLUTION FOR INJECTION IN PRE?FILLED PEN [Suspect]
     Active Substance: SUMATRIPTAN SUCCINATE
     Indication: PRODUCT USED FOR UNKNOWN INDICATION
     Route: 042

REACTIONS (2)
  - Product quality issue [Unknown]
  - Drug dose omission [Unknown]
